FAERS Safety Report 6653381-2 (Version None)
Quarter: 2010Q1

REPORT INFORMATION
  Report Type: 
  Country: None (occurrence: None)
  Receive Date: 20100326
  Receipt Date: 20100318
  Transmission Date: 20100710
  Serious: Yes (Other)
  Sender: FDA-Public Use
  Company Number: NL-ROCHE-692445

PATIENT
  Sex: Female

DRUGS (3)
  1. AVASTIN [Suspect]
     Route: 042
     Dates: start: 20091001
  2. PACLITAXEL [Suspect]
     Route: 042
     Dates: start: 20091001
  3. XELODA [Concomitant]
     Route: 065

REACTIONS (1)
  - DISEASE PROGRESSION [None]
